FAERS Safety Report 15564742 (Version 3)
Quarter: 2018Q4

REPORT INFORMATION
  Report Type: Spontaneous
  Country: US (occurrence: US)
  Receive Date: 20181030
  Receipt Date: 20181231
  Transmission Date: 20190205
  Serious: Yes (Hospitalization, Other)
  Sender: FDA-Public Use
  Company Number: US-PFIZER INC-2018440712

PATIENT
  Age: 45 Year
  Sex: Female
  Weight: 86.17 kg

DRUGS (1)
  1. XELJANZ XR [Suspect]
     Active Substance: TOFACITINIB CITRATE
     Indication: RHEUMATOID ARTHRITIS
     Dosage: 11 MG, 1X/DAY
     Route: 048
     Dates: start: 20180926

REACTIONS (5)
  - Therapeutic response unexpected [Unknown]
  - Fractured coccyx [Unknown]
  - Somnolence [Unknown]
  - Epilepsy [Unknown]
  - Fall [Unknown]
